FAERS Safety Report 16955283 (Version 1)
Quarter: 2019Q4

REPORT INFORMATION
  Report Type: Spontaneous
  Country: AU (occurrence: AU)
  Receive Date: 20191024
  Receipt Date: 20191024
  Transmission Date: 20200122
  Serious: Yes (Other)
  Sender: FDA-Public Use
  Company Number: AU-AMGEN-AUSSP2019171443

PATIENT
  Age: 81 Year
  Sex: Female

DRUGS (1)
  1. PROLIA [Suspect]
     Active Substance: DENOSUMAB
     Indication: OSTEOPOROSIS
     Dosage: UNK , Q6MO
     Route: 058
     Dates: start: 201904

REACTIONS (3)
  - Wrist fracture [Unknown]
  - Pain in extremity [Unknown]
  - Patella fracture [Unknown]

NARRATIVE: CASE EVENT DATE: 2019
